FAERS Safety Report 24156362 (Version 1)
Quarter: 2024Q3

REPORT INFORMATION
  Report Type: Spontaneous
  Country: CN (occurrence: CN)
  Receive Date: 20240731
  Receipt Date: 20240731
  Transmission Date: 20241016
  Serious: Yes (Other)
  Sender: ROCHE
  Company Number: CN-ROCHE-3346104

PATIENT
  Age: 72 Year
  Sex: Female

DRUGS (15)
  1. GAZYVA [Suspect]
     Active Substance: OBINUTUZUMAB
     Indication: Follicular lymphoma
     Route: 065
     Dates: start: 202305
  2. GAZYVA [Suspect]
     Active Substance: OBINUTUZUMAB
     Indication: Diffuse large B-cell lymphoma
     Route: 065
     Dates: start: 20240108
  3. GLOFITAMAB [Suspect]
     Active Substance: GLOFITAMAB
     Indication: Diffuse large B-cell lymphoma
     Route: 065
     Dates: start: 20240115
  4. GLOFITAMAB [Suspect]
     Active Substance: GLOFITAMAB
     Route: 065
     Dates: start: 20240122
  5. POLATUZUMAB VEDOTIN [Concomitant]
     Active Substance: POLATUZUMAB VEDOTIN
     Indication: Diffuse large B-cell lymphoma
     Dosage: TREATMENT ON 02-APR-2023, 27-APR-2023, FOR DIFFUSE LARGE B CELL LYMPHOMA
     Route: 065
  6. CYCLOPHOSPHAMIDE [Concomitant]
     Active Substance: CYCLOPHOSPHAMIDE
     Indication: Follicular lymphoma
     Dosage: G-CDOP, D1, TREATMENT ON 01-NOV-2021, 22-NOV-2021, 13-DEC-2021, 04-JAN-2022,?26-JAN-2022
  7. DOXORUBICIN HYDROCHLORIDE [Concomitant]
     Active Substance: DOXORUBICIN HYDROCHLORIDE
     Indication: Follicular lymphoma
     Dosage: G-CDOP, D1, TREATMENT ON 01-NOV-2021, 22-NOV-2021, 13-DEC-2021, 04-JAN-2022,?26-JAN-2022
  8. VINCRISTINE [Concomitant]
     Active Substance: VINCRISTINE
     Indication: Follicular lymphoma
     Dosage: G-CDOP, D1, TREATMENT ON 01-NOV-2021, 22-NOV-2021, 13-DEC-2021, 04-JAN-2022,?26-JAN-2022
  9. PREDNISONE [Concomitant]
     Active Substance: PREDNISONE
     Indication: Follicular lymphoma
     Dosage: G-CDOP, D1-5, TREATMENT ON 01-NOV-2021, 22-NOV-2021, 13-DEC-2021, 04-JAN-2022,?26-JAN-2022
  10. IFOSFAMIDE [Concomitant]
     Active Substance: IFOSFAMIDE
     Indication: Follicular lymphoma
  11. ETOPOSIDE [Concomitant]
     Active Substance: ETOPOSIDE
     Indication: Follicular lymphoma
     Dosage: G-MINE-LIKE, D1, TREATMENT ON 17-FEB-2022, 10-MAR-2022
  12. BENDAMUSTINE [Concomitant]
     Active Substance: BENDAMUSTINE
     Indication: Follicular lymphoma
     Dosage: GB
     Dates: start: 202205, end: 202206
  13. BRENTUXIMAB VEDOTIN [Concomitant]
     Active Substance: BRENTUXIMAB VEDOTIN
     Indication: Follicular lymphoma
     Dosage: FOR 1 CYCLE
  14. Herombopag [Concomitant]
     Indication: Diffuse large B-cell lymphoma
  15. LENALIDOMIDE [Concomitant]
     Active Substance: LENALIDOMIDE
     Indication: Diffuse large B-cell lymphoma

REACTIONS (3)
  - Off label use [Unknown]
  - Cytokine release syndrome [Recovering/Resolving]
  - Skin mass [Unknown]
